FAERS Safety Report 5840328-1 (Version None)
Quarter: 2008Q3

REPORT INFORMATION
  Report Type: 
  Country: None (occurrence: None)
  Receive Date: 20080807
  Receipt Date: 20080730
  Transmission Date: 20090109
  Serious: Yes (Death, Hospitalization)
  Sender: FDA-Public Use
  Company Number: CERZ-1000265

PATIENT
  Age: 72 Year
  Sex: Male
  Weight: 105 kg

DRUGS (1)
  1. CEREZYME [Suspect]
     Indication: GAUCHER'S DISEASE
     Dosage: 28.85 U/KG, Q2W, INTRAVENOUS
     Route: 042
     Dates: start: 19970306, end: 20080305

REACTIONS (12)
  - HYPERTENSION [None]
  - HYPONATRAEMIA [None]
  - INSOMNIA [None]
  - IRRITABLE BOWEL SYNDROME [None]
  - LUNG SQUAMOUS CELL CARCINOMA STAGE UNSPECIFIED [None]
  - MENTAL STATUS CHANGES [None]
  - PNEUMONIA [None]
  - PROSTATIC DISORDER [None]
  - PROSTATOMEGALY [None]
  - RENAL IMPAIRMENT [None]
  - TYPE 2 DIABETES MELLITUS [None]
  - WHITE BLOOD CELLS URINE POSITIVE [None]
